FAERS Safety Report 8940627 (Version 4)
Quarter: 2013Q1

REPORT INFORMATION
  Report Type: Spontaneous
  Country: JP (occurrence: JP)
  Receive Date: 20121203
  Receipt Date: 20130129
  Transmission Date: 20140127
  Serious: Yes (Hospitalization, Other)
  Sender: FDA-Public Use
  Company Number: PHHY2012JP110578

PATIENT
  Age: 86 Year
  Sex: Male
  Weight: 50 kg

DRUGS (11)
  1. RASILEZ [Suspect]
     Indication: HYPERTENSION
     Dosage: 150 MG DAILY
     Route: 048
     Dates: start: 20121114
  2. ALLOPURINOL [Suspect]
     Indication: HYPERURICAEMIA
     Dosage: 1 DF DAILY
     Route: 048
     Dates: start: 20121114, end: 20121130
  3. ALOSITOL [Concomitant]
     Dosage: 100 MG, UNK
     Route: 048
     Dates: start: 20121116
  4. MAGMITT [Concomitant]
     Dosage: 1320MG DAILY
     Route: 048
     Dates: start: 20121112, end: 20121116
  5. FUROSEMIDE [Concomitant]
     Indication: OEDEMA
     Dosage: 20 MG DAILY
     Route: 048
     Dates: start: 20121128
  6. MAINHEART [Concomitant]
     Indication: HYPERTENSION
     Dosage: 1 DF,
     Route: 048
     Dates: start: 201204
  7. TAKEPRON [Concomitant]
     Indication: GASTROOESOPHAGEAL REFLUX DISEASE
     Dosage: 1 DF,
     Route: 048
     Dates: start: 201204
  8. SEROQUEL [Concomitant]
     Indication: DEPRESSION
     Dosage: 1 DF,
     Route: 048
     Dates: start: 201204
  9. TETRAMIDE [Concomitant]
     Indication: DEPRESSION
     Dosage: 1 DF, UNK
     Route: 048
     Dates: start: 201204
  10. AMLODIPINA//AMLODIPINE MESILATE [Concomitant]
     Indication: HYPERTENSION
     Dosage: 1 DF, UNK
     Route: 048
     Dates: start: 201204
  11. ASPARA K [Concomitant]
     Indication: OEDEMA
     Dosage: 1 DF, UNK
     Dates: start: 20120614, end: 20121114

REACTIONS (19)
  - White blood cell count increased [Recovered/Resolved]
  - Gout [Recovering/Resolving]
  - Brain natriuretic peptide increased [Recovered/Resolved]
  - Upper respiratory tract inflammation [Recovered/Resolved]
  - Blood creatinine increased [Recovering/Resolving]
  - Pyrexia [Unknown]
  - Erythema [Unknown]
  - Pain in extremity [Unknown]
  - C-reactive protein increased [Unknown]
  - Red blood cell count decreased [Unknown]
  - Neutrophil count increased [Unknown]
  - Lymphocyte count decreased [Unknown]
  - Platelet count decreased [Unknown]
  - Oedema [Unknown]
  - Swelling [Unknown]
  - Haemoglobin decreased [Unknown]
  - Haematocrit decreased [Unknown]
  - Blood urea increased [Unknown]
  - Blood potassium increased [Unknown]
